FAERS Safety Report 10148959 (Version 3)
Quarter: 2014Q2

REPORT INFORMATION
  Report Type: Spontaneous
  Country: US (occurrence: US)
  Receive Date: 20140502
  Receipt Date: 20140529
  Transmission Date: 20141212
  Serious: Yes (Other)
  Sender: FDA-Public Use
  Company Number: US-ROCHE-1321249

PATIENT
  Age: 37 Year
  Sex: Female

DRUGS (7)
  1. NEULASTA [Suspect]
     Indication: BREAST CANCER
     Dosage: 24 HRS AFTER CHEMOTHERAPY TREATMENT
     Route: 058
     Dates: start: 20131017, end: 20140123
  2. ADRIAMYCIN [Concomitant]
     Route: 065
     Dates: start: 20131017
  3. CYTOXAN [Concomitant]
     Route: 065
     Dates: start: 20131017
  4. TAXOL [Concomitant]
     Route: 065
     Dates: start: 20131212
  5. WELLBUTRIN [Concomitant]
     Route: 065
     Dates: start: 2004
  6. CELEXA (UNITED STATES) [Concomitant]
     Route: 065
     Dates: start: 2004
  7. INFLUENZA VACCINE [Concomitant]

REACTIONS (4)
  - Breast lump removal [Unknown]
  - Catheter placement [Unknown]
  - Pregnancy [Unknown]
  - Breast cancer recurrent [Unknown]
